FAERS Safety Report 15862806 (Version 2)
Quarter: 2019Q3

REPORT INFORMATION
  Report Type: Spontaneous
  Country: US (occurrence: US)
  Receive Date: 20190124
  Receipt Date: 20190819
  Transmission Date: 20191004
  Serious: No
  Sender: FDA-Public Use
  Company Number: US-MYLANLABS-2019M1002952

PATIENT
  Sex: Female
  Weight: 83 kg

DRUGS (2)
  1. THIOTHIXENE CAPSULES, USP [Suspect]
     Active Substance: THIOTHIXENE
     Dosage: 1 MILLIGRAM, QD
  2. THIOTHIXENE CAPSULES, USP [Suspect]
     Active Substance: THIOTHIXENE
     Indication: ANXIETY
     Dosage: UNK

REACTIONS (2)
  - Product availability issue [Unknown]
  - Tremor [Unknown]
